FAERS Safety Report 6791697-X (Version None)
Quarter: 2010Q2

REPORT INFORMATION
  Report Type: 
  Country: None (occurrence: None)
  Receive Date: 20100624
  Receipt Date: 20100617
  Transmission Date: 20101027
  Serious: Yes (Hospitalization)
  Sender: FDA-Public Use
  Company Number: US-PURDUE-USA-2010-0044593

PATIENT

DRUGS (1)
  1. OXYCONTIN [Suspect]
     Indication: DRUG USE FOR UNKNOWN INDICATION
     Dosage: 80 MG, Q8H

REACTIONS (4)
  - ANXIETY [None]
  - HYPERTENSION [None]
  - HYPOCALCAEMIA [None]
  - HYPOKALAEMIA [None]
